FAERS Safety Report 12926360 (Version 2)
Quarter: 2017Q1

REPORT INFORMATION
  Report Type: Spontaneous
  Country: JP (occurrence: JP)
  Receive Date: 20161109
  Receipt Date: 20170328
  Transmission Date: 20170428
  Serious: Yes (Death, Other)
  Sender: FDA-Public Use
  Company Number: JP-INCYTE CORPORATION-2016IN007145

PATIENT
  Age: 69 Year
  Sex: Female

DRUGS (1)
  1. JAKAVI [Suspect]
     Active Substance: RUXOLITINIB
     Indication: PRIMARY MYELOFIBROSIS
     Dosage: 5 MG, BID
     Route: 048
     Dates: start: 201512, end: 201603

REACTIONS (9)
  - Extramedullary haemopoiesis [Unknown]
  - Cardiac arrest [Unknown]
  - Circulatory collapse [Fatal]
  - Haemothorax [Fatal]
  - Respiratory failure [Fatal]
  - Pulmonary congestion [Unknown]
  - Cardiac tamponade [Fatal]
  - Pericardial effusion [Fatal]
  - Pneumothorax [Unknown]

NARRATIVE: CASE EVENT DATE: 201603
